FAERS Safety Report 11113376 (Version 1)
Quarter: 2015Q2

REPORT INFORMATION
  Report Type: Report from Study
  Country: US (occurrence: US)
  Receive Date: 20150514
  Receipt Date: 20150514
  Transmission Date: 20150821
  Serious: Yes (Hospitalization, Other)
  Sender: FDA-Public Use
  Company Number: US-GILEAD-2015-0153123

PATIENT
  Age: 13 Year
  Sex: Male

DRUGS (16)
  1. DIURIL                             /00011801/ [Concomitant]
  2. ALDACTONE [Concomitant]
     Active Substance: SPIRONOLACTONE
  3. DIAMOX                             /00016901/ [Concomitant]
     Active Substance: ACETAZOLAMIDE
  4. AMBRISENTAN [Suspect]
     Active Substance: AMBRISENTAN
     Indication: COR PULMONALE CHRONIC
     Dosage: 7.5 MG, QD
     Route: 065
     Dates: start: 20150331
  5. METHADONE [Concomitant]
     Active Substance: METHADONE HYDROCHLORIDE
  6. POTASSIUM [Concomitant]
     Active Substance: POTASSIUM
  7. CIALIS [Concomitant]
     Active Substance: TADALAFIL
  8. MULTIVITAMIN                       /00097801/ [Concomitant]
     Active Substance: VITAMINS
  9. VALIUM [Concomitant]
     Active Substance: DIAZEPAM
  10. OXYCODONE [Concomitant]
     Active Substance: OXYCODONE
  11. ENALAPRIL [Concomitant]
     Active Substance: ENALAPRIL
  12. MELATONIN [Concomitant]
     Active Substance: MELATONIN
  13. ASPIRIN                            /00002701/ [Concomitant]
     Active Substance: ASPIRIN
  14. HYDROCORTISONE. [Concomitant]
     Active Substance: HYDROCORTISONE
  15. ADIPEX                             /00131701/ [Concomitant]
  16. DIGOXIN. [Concomitant]
     Active Substance: DIGOXIN

REACTIONS (3)
  - Shock [Unknown]
  - Hypotension [Unknown]
  - Off label use [Not Recovered/Not Resolved]
